FAERS Safety Report 8399292-6 (Version None)
Quarter: 2012Q2

REPORT INFORMATION
  Report Type: 
  Country: None (occurrence: None)
  Receive Date: 20120531
  Receipt Date: 20120517
  Transmission Date: 20120825
  Serious: Yes (Death, Hospitalization, Other)
  Sender: FDA-Public Use
  Company Number: CA-ROCHE-1049829

PATIENT
  Sex: Male
  Weight: 107 kg

DRUGS (14)
  1. ACTEMRA [Suspect]
     Indication: RHEUMATOID ARTHRITIS
     Route: 042
     Dates: start: 20110516, end: 20120302
  2. AMLODIPINE [Concomitant]
     Indication: HYPERTENSION
  3. LIPITOR [Concomitant]
  4. METHOTREXATE [Concomitant]
  5. ROBAXACET [Concomitant]
  6. RAMIPRIL [Concomitant]
     Indication: HYPERTENSION
  7. HYDROCHLOROTHIAZIDE [Concomitant]
  8. GLIMEPIRIDE [Concomitant]
     Indication: DIABETES MELLITUS
  9. PREDNISONE [Concomitant]
  10. FINASTERIDE [Concomitant]
  11. FOLIC ACID [Concomitant]
  12. DAPSONE [Concomitant]
     Indication: DERMATITIS
  13. ALENDRONATE SODIUM [Concomitant]
  14. VITAMIN D [Concomitant]

REACTIONS (5)
  - DEATH [None]
  - DEEP VEIN THROMBOSIS [None]
  - HAEMORRHAGE [None]
  - PULMONARY EMBOLISM [None]
  - ATRIAL FIBRILLATION [None]
